FAERS Safety Report 9667893 (Version 2)
Quarter: 2014Q1

REPORT INFORMATION
  Report Type: Spontaneous
  Country: SE (occurrence: SE)
  Receive Date: 20131104
  Receipt Date: 20140224
  Transmission Date: 20141002
  Serious: Yes (Other)
  Sender: FDA-Public Use
  Company Number: SE-BRISTOL-MYERS SQUIBB COMPANY-19635325

PATIENT
  Age: 36 Year
  Sex: Male

DRUGS (3)
  1. BYDUREON 2MG SUSPENSION [Suspect]
     Indication: DIABETES MELLITUS
     Dosage: POWDER AND SOLVENT FOR PROLONGED-RELEASE SUSPENSION FOR INJECTION 2 MG
     Route: 058
     Dates: start: 20130408, end: 20130615
  2. METFORMIN [Concomitant]
  3. ENALAPRIL [Concomitant]

REACTIONS (2)
  - Thrombocytopenia [Recovered/Resolved]
  - Immune thrombocytopenic purpura [Recovered/Resolved]
